FAERS Safety Report 6858016-1 (Version None)
Quarter: 2010Q3

REPORT INFORMATION
  Report Type: 
  Country: None (occurrence: None)
  Receive Date: 20100715
  Receipt Date: 20100630
  Transmission Date: 20110219
  Serious: Yes (Death, Hospitalization)
  Sender: FDA-Public Use
  Company Number: ALA_00603_2010

PATIENT
  Age: 70 Year
  Sex: Female

DRUGS (1)
  1. MESALAZINE [Suspect]
     Indication: CROHN'S DISEASE

REACTIONS (3)
  - DIFFUSE ALVEOLAR DAMAGE [None]
  - DRUG TOXICITY [None]
  - INTERSTITIAL LUNG DISEASE [None]
